FAERS Safety Report 12716554 (Version 1)
Quarter: 2016Q3

REPORT INFORMATION
  Report Type: Spontaneous
  Country: US (occurrence: US)
  Receive Date: 20160906
  Receipt Date: 20160906
  Transmission Date: 20161109
  Serious: Yes (Other)
  Sender: FDA-Public Use
  Company Number: US-PFIZER INC-2016409133

PATIENT
  Age: 79 Year
  Sex: Male
  Weight: 77.11 kg

DRUGS (4)
  1. VIAGRA [Suspect]
     Active Substance: SILDENAFIL CITRATE
     Indication: PROSTATIC DISORDER
     Dosage: 100 MG, FOUR TABLETS ONE AT A TIME
     Route: 048
  2. AMLODIPINE [Concomitant]
     Active Substance: AMLODIPINE BESYLATE
     Indication: BLOOD PRESSURE ABNORMAL
  3. ASPIRIN. [Concomitant]
     Active Substance: ASPIRIN
     Dosage: 225 MG, UNK
  4. NORVASC [Concomitant]
     Active Substance: AMLODIPINE BESYLATE
     Indication: BLOOD PRESSURE ABNORMAL

REACTIONS (3)
  - Product use issue [Unknown]
  - Gait disturbance [Unknown]
  - Lyme disease [Unknown]

NARRATIVE: CASE EVENT DATE: 20160816
